FAERS Safety Report 11114234 (Version 1)
Quarter: 2015Q2

REPORT INFORMATION
  Report Type: Spontaneous
  Country: US (occurrence: US)
  Receive Date: 20150514
  Receipt Date: 20150514
  Transmission Date: 20150821
  Serious: Yes (Hospitalization)
  Sender: FDA-Public Use
  Company Number: US-B.I. PHARMACEUTICALS,INC./RIDGEFIELD-2015-BI-24211BP

PATIENT
  Age: 55 Year
  Sex: Female
  Weight: 41 kg

DRUGS (4)
  1. SPIRIVA [Suspect]
     Active Substance: TIOTROPIUM BROMIDE MONOHYDRATE
     Indication: EMPHYSEMA
     Dosage: 18 MCG
     Route: 055
     Dates: start: 201502
  2. HEPARIN [Concomitant]
     Active Substance: HEPARIN SODIUM
     Indication: PRODUCT USED FOR UNKNOWN INDICATION
     Dosage: 10000 U
     Route: 058
  3. PROTONIX [Concomitant]
     Active Substance: PANTOPRAZOLE SODIUM
     Indication: DYSPEPSIA
     Dosage: 40 MG
     Route: 048
     Dates: start: 201502
  4. CIMETIDINE [Concomitant]
     Active Substance: CIMETIDINE
     Indication: DYSPEPSIA
     Dosage: 20 MG
     Route: 048

REACTIONS (7)
  - Spinal fracture [Not Recovered/Not Resolved]
  - Tongue ulceration [Unknown]
  - Mouth ulceration [Unknown]
  - Abnormal loss of weight [Unknown]
  - Pneumonia pneumococcal [Unknown]
  - Device failure [Unknown]
  - Haemoptysis [Unknown]

NARRATIVE: CASE EVENT DATE: 201502
